FAERS Safety Report 17735334 (Version 7)
Quarter: 2021Q3

REPORT INFORMATION
  Report Type: Report from Study
  Country: UA (occurrence: UA)
  Receive Date: 20200501
  Receipt Date: 20210824
  Transmission Date: 20211014
  Serious: Yes (Hospitalization, Other)
  Sender: FDA-Public Use
  Company Number: UA-CELGENEUS-UKR-20190704745

PATIENT
  Age: 45 Year
  Sex: Female
  Weight: 63.5 kg

DRUGS (7)
  1. OZANIMOD. [Suspect]
     Active Substance: OZANIMOD
     Indication: MULTIPLE SCLEROSIS
     Dosage: 1 MILLIGRAM
     Route: 048
     Dates: start: 20161101, end: 20190618
  2. DIANE (CYPROTERONE ACETATE\ETHINYL ESTRADIOL) [Concomitant]
     Active Substance: CYPROTERONE ACETATE\ETHINYL ESTRADIOL
     Indication: CONTRACEPTION
     Route: 065
     Dates: start: 201506, end: 20170405
  3. PAROXINI [Concomitant]
     Indication: MIXED ANXIETY AND DEPRESSIVE DISORDER
     Dosage: 10 MILLIGRAM
     Route: 048
     Dates: start: 20171120
  4. OTIPAX [Concomitant]
     Indication: OTITIS MEDIA
     Dosage: 30 MILLIGRAM
     Route: 050
     Dates: start: 20171120
  5. PROPOFOL. [Concomitant]
     Active Substance: PROPOFOL
     Indication: ENDOCERVICAL CURETTAGE
  6. PROPOFOL. [Concomitant]
     Active Substance: PROPOFOL
     Indication: ANAESTHESIA
     Route: 041
     Dates: start: 20190528, end: 20190528
  7. METHYLPREDNISOLONE. [Concomitant]
     Active Substance: METHYLPREDNISOLONE
     Indication: MULTIPLE SCLEROSIS
     Dosage: 3000?5000 MG
     Route: 065
     Dates: start: 2008

REACTIONS (1)
  - Endometrial adenocarcinoma [Recovered/Resolved]

NARRATIVE: CASE EVENT DATE: 20190528
